FAERS Safety Report 9580008 (Version 1)
Quarter: 2013Q3

REPORT INFORMATION
  Report Type: Spontaneous
  Country: US (occurrence: None)
  Receive Date: 20130916
  Receipt Date: 20130916
  Transmission Date: 20140515
  Serious: Yes (Other)
  Sender: FDA-Public Use
  Company Number: JPI-P-025569

PATIENT
  Age: 49 Year
  Sex: Female

DRUGS (3)
  1. XYREM [Suspect]
     Indication: CATAPLEXY
     Route: 048
     Dates: start: 20120929, end: 20121001
  2. PROPRANOLOL [Concomitant]
  3. LISINOPRIL [Concomitant]

REACTIONS (7)
  - Blood pressure increased [None]
  - Condition aggravated [None]
  - Swollen tongue [None]
  - Generalised oedema [None]
  - Abdominal pain upper [None]
  - Nausea [None]
  - Vomiting [None]
